FAERS Safety Report 10246078 (Version 1)
Quarter: 2014Q2

REPORT INFORMATION
  Report Type: Spontaneous
  Country: US (occurrence: None)
  Receive Date: 20140617
  Receipt Date: 20140617
  Transmission Date: 20141212
  Serious: Yes (Other)
  Sender: FDA-Public Use
  Company Number: None

PATIENT
  Age: 61 Year
  Sex: Female
  Weight: 63.5 kg

DRUGS (1)
  1. PAXIL [Suspect]
     Indication: DEPRESSION
     Dosage: 4 PILLS
     Route: 048

REACTIONS (5)
  - Yawning [None]
  - Dyspnoea [None]
  - Paraesthesia [None]
  - Depression [None]
  - Drug ineffective [None]
